FAERS Safety Report 19585636 (Version 2)
Quarter: 2021Q4

REPORT INFORMATION
  Report Type: Other
  Country: CA (occurrence: CA)
  Receive Date: 20210721
  Receipt Date: 20211011
  Transmission Date: 20220303
  Serious: Yes (Death)
  Sender: FDA-Public Use
  Company Number: CA-TOLMAR, INC.-21CA028436

PATIENT
  Sex: Male

DRUGS (2)
  1. ELIGARD [Suspect]
     Active Substance: LEUPROLIDE ACETATE
     Indication: Prostate cancer
     Dosage: 30 MILLIGRAM, Q 4 MONTH
     Route: 058
     Dates: start: 20180126
  2. ELIGARD [Suspect]
     Active Substance: LEUPROLIDE ACETATE
     Dosage: 30 MILLIGRAM, Q 4 MONTH
     Route: 058
     Dates: start: 20210621

REACTIONS (5)
  - Death [Fatal]
  - Weight decreased [Unknown]
  - Aggression [Unknown]
  - Gait disturbance [Unknown]
  - Pain [Unknown]
